FAERS Safety Report 25904054 (Version 1)
Quarter: 2025Q4

REPORT INFORMATION
  Report Type: Spontaneous
  Country: US (occurrence: US)
  Receive Date: 20251010
  Receipt Date: 20251010
  Transmission Date: 20260117
  Serious: No
  Sender: HIKMA
  Company Number: US-HIKMA PHARMACEUTICALS USA INC.-US-H14001-25-04615

PATIENT
  Sex: Female

DRUGS (6)
  1. BRAFTOVI [Suspect]
     Active Substance: ENCORAFENIB
     Indication: Colon cancer
     Dosage: 300 MILLIGRAM, QD
     Route: 048
     Dates: start: 20250506
  2. BRAFTOVI [Suspect]
     Active Substance: ENCORAFENIB
     Dosage: 300 MILLIGRAM, QD
     Route: 048
     Dates: start: 20250506
  3. ERBITUX [Suspect]
     Active Substance: CETUXIMAB
     Indication: Product used for unknown indication
     Dosage: UNK UNK, QOW
     Route: 042
     Dates: start: 20250506
  4. FLUOROURACIL [Suspect]
     Active Substance: FLUOROURACIL
     Indication: Product used for unknown indication
     Dosage: UNK UNK, QOW
     Route: 042
     Dates: start: 20250506
  5. LEUCOVORIN [Suspect]
     Active Substance: LEUCOVORIN\LEUCOVORIN CALCIUM
     Indication: Product used for unknown indication
     Dosage: UNK UNK, QOW
     Route: 065
     Dates: start: 20250506
  6. OXALIPLATIN [Suspect]
     Active Substance: OXALIPLATIN
     Indication: Product used for unknown indication
     Dosage: UNK UNK, QOW
     Route: 042
     Dates: start: 20250506

REACTIONS (7)
  - Neuropathy peripheral [Unknown]
  - White blood cell count decreased [Unknown]
  - Arthralgia [Unknown]
  - Fatigue [Unknown]
  - Platelet count decreased [Unknown]
  - Nausea [Unknown]
  - Product dose omission issue [Unknown]

NARRATIVE: CASE EVENT DATE: 20250620
